FAERS Safety Report 9757441 (Version 2)
Quarter: 2013Q4

REPORT INFORMATION
  Report Type: Report from Study
  Country: DE (occurrence: DE)
  Receive Date: 20131215
  Receipt Date: 20131224
  Transmission Date: 20140711
  Serious: Yes (Hospitalization)
  Sender: FDA-Public Use
  Company Number: DE-AMGEN-DEUCT2013087059

PATIENT
  Age: 69 Year
  Sex: Female
  Weight: 69 kg

DRUGS (8)
  1. PANITUMUMAB [Suspect]
     Indication: OVARIAN CANCER RECURRENT
     Dosage: 426 MG/KG, UNK
     Route: 042
     Dates: start: 20130619, end: 20131104
  2. PEGYLATED LIPOSOMAL DOXORUBICIN HYDROCHLORIDE [Concomitant]
     Indication: OVARIAN CANCER RECURRENT
     Dosage: 20 MG/M2, UNK
     Route: 042
     Dates: start: 20130619
  3. CARBOPLATIN [Concomitant]
     Indication: OVARIAN CANCER RECURRENT
     Dosage: UNK
     Route: 042
     Dates: start: 20130619
  4. RAMIPRIL [Concomitant]
     Indication: HYPERTENSION
     Dosage: 2.5 MG, QD
     Route: 048
     Dates: start: 20130511
  5. IBUPROFEN [Concomitant]
     Indication: MUSCULOSKELETAL PAIN
     Dosage: 500 MG, UNK
     Route: 048
     Dates: start: 20120211
  6. DOXYCYCLIN                         /00055701/ [Concomitant]
     Indication: SKIN INFECTION
     Dosage: 100 MG, BID
     Route: 048
     Dates: start: 20131023
  7. SPASMEX                            /00376202/ [Concomitant]
     Indication: URGE INCONTINENCE
     Dosage: 15 MG, TID
     Route: 048
     Dates: start: 20130724
  8. NOVALGIN                           /00169801/ [Concomitant]
     Indication: PAIN
     Dosage: 40 GTT, UNK
     Route: 048
     Dates: start: 201305

REACTIONS (1)
  - Anaemia [Recovering/Resolving]
